FAERS Safety Report 5793526-X (Version None)
Quarter: 2008Q2

REPORT INFORMATION
  Report Type: 
  Country: None (occurrence: None)
  Receive Date: 20080627
  Receipt Date: 20080616
  Transmission Date: 20081010
  Serious: Yes (Hospitalization, Other)
  Sender: FDA-Public Use
  Company Number: PHHY2008JP08019

PATIENT
  Sex: Female

DRUGS (3)
  1. VOLTAREN [Suspect]
     Indication: PAIN
     Dosage: 50 MG/DAY
     Route: 054
     Dates: start: 20050516, end: 20050701
  2. VOLTAREN [Suspect]
     Indication: PAIN
     Dosage: 75 MG/DAY
     Route: 048
     Dates: start: 20050328, end: 20050701
  3. SELBEX [Concomitant]
     Indication: PROPHYLAXIS AGAINST GASTROINTESTINAL ULCER
     Dosage: 100 MG
     Route: 048
     Dates: start: 20050328

REACTIONS (8)
  - CHEST DISCOMFORT [None]
  - GASTRIC ULCER [None]
  - GASTRIC ULCER HAEMORRHAGE [None]
  - HAEMATOCRIT INCREASED [None]
  - HAEMOGLOBIN INCREASED [None]
  - MONOCYTE COUNT DECREASED [None]
  - PLATELET COUNT INCREASED [None]
  - STOMACH DISCOMFORT [None]
